FAERS Safety Report 7428386-4 (Version None)
Quarter: 2011Q2

REPORT INFORMATION
  Report Type: 
  Country: None (occurrence: None)
  Receive Date: 20110421
  Receipt Date: 20110418
  Transmission Date: 20111010
  Serious: Yes (Hospitalization)
  Sender: FDA-Public Use
  Company Number: FR-EISAI INC-E2090-01573-SPO-FR

PATIENT
  Age: 61 Year
  Sex: Male

DRUGS (4)
  1. ZONEGRAN [Suspect]
     Indication: EPILEPSY
     Route: 048
     Dates: start: 20090301, end: 20101201
  2. LAMICTAL [Concomitant]
     Indication: EPILEPSY
     Route: 048
  3. DEPAKENE [Concomitant]
     Indication: EPILEPSY
     Route: 048
  4. AVLOCARDYL [Concomitant]
     Indication: EPILEPSY
     Route: 048

REACTIONS (1)
  - EOSINOPHILIC COLITIS [None]
